FAERS Safety Report 6517953-8 (Version None)
Quarter: 2009Q4

REPORT INFORMATION
  Report Type: 
  Country: None (occurrence: None)
  Receive Date: 20091224
  Receipt Date: 20091215
  Transmission Date: 20100525
  Serious: Yes (Other)
  Sender: FDA-Public Use
  Company Number: US-ELI_LILLY_AND_COMPANY-US200912003753

PATIENT
  Sex: Male

DRUGS (1)
  1. CYMBALTA [Suspect]
     Indication: ARRHYTHMIA
     Dosage: 30 MG, DAILY (1/D)
     Dates: start: 20091001, end: 20091214

REACTIONS (6)
  - ARRHYTHMIA [None]
  - DIZZINESS [None]
  - DRUG WITHDRAWAL SYNDROME [None]
  - FEELING ABNORMAL [None]
  - OFF LABEL USE [None]
  - TINNITUS [None]
